FAERS Safety Report 23262712 (Version 1)
Quarter: 2023Q4

REPORT INFORMATION
  Report Type: Spontaneous
  Country: DE (occurrence: DE)
  Receive Date: 20231205
  Receipt Date: 20231205
  Transmission Date: 20240110
  Serious: Yes (Death, Hospitalization, Other)
  Sender: FDA-Public Use
  Company Number: DE-AMGEN-DEUSP2023215014

PATIENT
  Age: 58 Year
  Sex: Female

DRUGS (19)
  1. BLINATUMOMAB [Suspect]
     Active Substance: BLINATUMOMAB
     Indication: Acute lymphocytic leukaemia
     Dosage: UNK
     Route: 065
     Dates: start: 202009
  2. PEGASPARGASE [Concomitant]
     Active Substance: PEGASPARGASE
     Indication: Acute lymphocytic leukaemia
     Dosage: UNK (2000 UNIT/M^2)
     Route: 065
     Dates: start: 201906
  3. PEGASPARGASE [Concomitant]
     Active Substance: PEGASPARGASE
     Dosage: UNK
     Route: 065
     Dates: start: 202111
  4. PEGASPARGASE [Concomitant]
     Active Substance: PEGASPARGASE
     Dosage: UNK (1000 IE/M^2)
     Route: 065
     Dates: start: 202201
  5. CYCLOPHOSPHAMIDE [Concomitant]
     Active Substance: CYCLOPHOSPHAMIDE
     Indication: Acute lymphocytic leukaemia
     Dosage: UNK
     Route: 065
     Dates: start: 201906
  6. CYCLOPHOSPHAMIDE [Concomitant]
     Active Substance: CYCLOPHOSPHAMIDE
     Dosage: UNK
     Route: 065
     Dates: start: 202111
  7. CYCLOPHOSPHAMIDE [Concomitant]
     Active Substance: CYCLOPHOSPHAMIDE
     Dosage: UNK
     Route: 065
     Dates: start: 202112
  8. RITUXIMAB [Concomitant]
     Active Substance: RITUXIMAB
     Indication: Acute lymphocytic leukaemia
     Dosage: UNK
     Route: 065
     Dates: start: 201906
  9. RITUXIMAB [Concomitant]
     Active Substance: RITUXIMAB
     Dosage: UNK
     Route: 065
     Dates: start: 202111
  10. RITUXIMAB [Concomitant]
     Active Substance: RITUXIMAB
     Dosage: UNK
     Route: 065
     Dates: start: 202201
  11. METHOTREXATE [Concomitant]
     Active Substance: METHOTREXATE
     Indication: Prophylaxis
     Dosage: UNK
     Route: 029
     Dates: start: 201906
  12. METHOTREXATE [Concomitant]
     Active Substance: METHOTREXATE
     Dosage: UNK (HIGH DOSE)
     Route: 029
     Dates: start: 202111
  13. METHOTREXATE [Concomitant]
     Active Substance: METHOTREXATE
     Dosage: 1000 MILLIGRAM/M^2
     Route: 029
     Dates: start: 202201
  14. INOTUZUMAB OZOGAMICIN [Concomitant]
     Active Substance: INOTUZUMAB OZOGAMICIN
     Indication: Acute lymphocytic leukaemia
     Dosage: 0.6 MILLIGRAM/M^2
     Route: 065
     Dates: start: 202111
  15. INOTUZUMAB OZOGAMICIN [Concomitant]
     Active Substance: INOTUZUMAB OZOGAMICIN
     Dosage: 0.3 MILLIGRAM/M^2
     Route: 065
     Dates: start: 202111
  16. INOTUZUMAB OZOGAMICIN [Concomitant]
     Active Substance: INOTUZUMAB OZOGAMICIN
     Dosage: 0.3 MILLIGRAM/M^2 (TWO ADDITIONAL DOSES)
     Route: 065
     Dates: start: 202112
  17. VINCRISTINE [Concomitant]
     Active Substance: VINCRISTINE
     Dosage: UNK
     Route: 065
     Dates: start: 202111
  18. URSODIOL [Concomitant]
     Active Substance: URSODIOL
     Indication: Prophylaxis
     Dosage: UNK
     Route: 065
     Dates: start: 202111
  19. CYTARABINE [Concomitant]
     Active Substance: CYTARABINE
     Dosage: UNK
     Route: 065
     Dates: start: 202112

REACTIONS (19)
  - Shock haemorrhagic [Fatal]
  - Post procedural haemorrhage [Unknown]
  - Acute lymphocytic leukaemia recurrent [Unknown]
  - Aspartate aminotransferase increased [Recovered/Resolved]
  - General physical health deterioration [Unknown]
  - Blood bilirubin increased [Unknown]
  - Neuropathy peripheral [Unknown]
  - Venoocclusive disease [Unknown]
  - Intra-abdominal haematoma [Unknown]
  - Hepatic encephalopathy [Unknown]
  - Hepatorenal syndrome [Unknown]
  - Haemoglobin decreased [Unknown]
  - Alanine aminotransferase increased [Recovered/Resolved]
  - Stomatitis [Unknown]
  - Pruritus [Unknown]
  - Urinary tract disorder [Unknown]
  - Nervous system disorder [Recovered/Resolved]
  - Gait disturbance [Recovered/Resolved]
  - Dysgraphia [Recovered/Resolved]

NARRATIVE: CASE EVENT DATE: 20211001
